FAERS Safety Report 13424062 (Version 2)
Quarter: 2017Q2

REPORT INFORMATION
  Report Type: Spontaneous
  Country: US (occurrence: US)
  Receive Date: 20170410
  Receipt Date: 20170612
  Transmission Date: 20170830
  Serious: No
  Sender: FDA-Public Use
  Company Number: US-ASTRAZENECA-2017SE21452

PATIENT
  Age: 82 Year
  Sex: Female

DRUGS (3)
  1. BEVESPI AEROSPHERE [Suspect]
     Active Substance: FORMOTEROL FUMARATE\GLYCOPYRROLATE
     Indication: CHRONIC OBSTRUCTIVE PULMONARY DISEASE
     Dosage: 9MCG/4.8MCG PMDI 1X120 SAMPLE UNIT, TWO PUFFS TWO TIMES A DAY
     Route: 055
     Dates: start: 2017, end: 2017
  2. BUDESONIDE. [Suspect]
     Active Substance: BUDESONIDE
     Route: 055
  3. BROVANA NEBULIZER [Concomitant]

REACTIONS (1)
  - Rash [Unknown]

NARRATIVE: CASE EVENT DATE: 2017
